FAERS Safety Report 6546029-9 (Version None)
Quarter: 2010Q1

REPORT INFORMATION
  Report Type: 
  Country: None (occurrence: None)
  Receive Date: 20100121
  Receipt Date: 20100121
  Transmission Date: 20100710
  Serious: No
  Sender: FDA-Public Use
  Company Number: None

PATIENT
  Age: 45 Year
  Sex: Male

DRUGS (2)
  1. MORPHINE [Suspect]
     Indication: MUSCLE SPASMS
     Dosage: 8 MG IV
     Route: 042
  2. OXYCODONE [Suspect]
     Dosage: 15 MG PO
     Route: 048

REACTIONS (6)
  - APNOEIC ATTACK [None]
  - CARDIO-RESPIRATORY ARREST [None]
  - DIZZINESS [None]
  - MIOSIS [None]
  - OXYGEN SATURATION DECREASED [None]
  - RESPIRATORY DISTRESS [None]
